FAERS Safety Report 11539805 (Version 2)
Quarter: 2016Q1

REPORT INFORMATION
  Report Type: Spontaneous
  Country: US (occurrence: US)
  Receive Date: 20150923
  Receipt Date: 20160120
  Transmission Date: 20160525
  Serious: Yes (Other)
  Sender: FDA-Public Use
  Company Number: US-REGENERON PHARMACEUTICALS, INC.-2015-12418

PATIENT

DRUGS (2)
  1. EYLEA [Suspect]
     Active Substance: AFLIBERCEPT
     Dosage: STANDARD DOSE, EVERY 8 TO 10 WEEKS
     Route: 031
     Dates: start: 20150728, end: 20150728
  2. EYLEA [Suspect]
     Active Substance: AFLIBERCEPT
     Indication: NEOVASCULAR AGE-RELATED MACULAR DEGENERATION
     Dosage: STANDARD DOSE, EVERY 8 TO 10 WEEKS
     Route: 031
     Dates: start: 20120501, end: 20120501

REACTIONS (2)
  - Uveitis [Unknown]
  - Vitrectomy [Unknown]

NARRATIVE: CASE EVENT DATE: 20150910
